FAERS Safety Report 5199618-0 (Version None)
Quarter: 2007Q1

REPORT INFORMATION
  Report Type: 
  Country: None (occurrence: None)
  Receive Date: 20070102
  Receipt Date: 20070102
  Transmission Date: 20070707
  Serious: Yes (Life-Threatening, Hospitalization, Disabling)
  Sender: FDA-Public Use
  Company Number: None

PATIENT
  Age: 64 Year
  Sex: Male
  Weight: 113 kg

DRUGS (16)
  1. EPTIFIBATIDE [Suspect]
     Indication: PERCUTANEOUS CORONARY INTERVENTION
     Dosage: ONCE IV
     Route: 042
     Dates: start: 20060815, end: 20060815
  2. ALLOPURINOL SODIUM [Concomitant]
  3. ASPIRIN [Concomitant]
  4. BRINZOLAMIDE [Concomitant]
  5. CLOPIDOGREL [Concomitant]
  6. DOCUSATE [Concomitant]
  7. GEMFIBROZIL [Concomitant]
  8. LOSARTAN POTASSIUM [Concomitant]
  9. LOVASTATIN [Concomitant]
  10. METOPROLOL SUCCINATE [Concomitant]
  11. MINERALS/MULTIVITAMINS [Concomitant]
  12. NITROGLYCERIN [Concomitant]
  13. OMEPRAZOLE [Concomitant]
  14. SODIUM BICARBONATE [Concomitant]
  15. TIMOLOL MALEATE [Concomitant]
  16. TRAVOPROST [Concomitant]

REACTIONS (1)
  - THROMBOCYTOPENIA [None]
